FAERS Safety Report 4960684-6 (Version None)
Quarter: 2006Q2

REPORT INFORMATION
  Report Type: 
  Country: None (occurrence: None)
  Receive Date: 20060403
  Receipt Date: 20051020
  Transmission Date: 20061013
  Serious: Yes (Hospitalization, Other)
  Sender: FDA-Public Use
  Company Number: US-MERCK-0510USA08583

PATIENT
  Age: 62 Year
  Sex: Male
  Weight: 95 kg

DRUGS (4)
  1. VIOXX [Suspect]
     Indication: NECK PAIN
     Route: 048
     Dates: start: 20021113, end: 20040101
  2. LIPITOR [Concomitant]
     Indication: BLOOD CHOLESTEROL INCREASED
     Route: 065
  3. MOBIC [Concomitant]
     Indication: PAIN
     Route: 065
  4. AMITRIPTYLIN [Concomitant]
     Indication: PAIN
     Route: 065

REACTIONS (5)
  - ADVERSE EVENT [None]
  - CHEST PAIN [None]
  - MYOCARDIAL INFARCTION [None]
  - NECK PAIN [None]
  - RHEUMATOID ARTHRITIS [None]
